FAERS Safety Report 4626187-3 (Version None)
Quarter: 2005Q2

REPORT INFORMATION
  Report Type: 
  Country: None (occurrence: None)
  Receive Date: 20050404
  Receipt Date: 20050321
  Transmission Date: 20051028
  Serious: Yes (Death)
  Sender: FDA-Public Use
  Company Number: GB-BOEHRINGER INGELHEIM PHARMACEUTICALS, INC.-2005-UK-00488UK

PATIENT
  Sex: Male

DRUGS (12)
  1. SPIRIVA [Suspect]
     Route: 055
  2. COCODAMOL [Concomitant]
  3. SIMVASTATIN [Concomitant]
  4. FUROSEMIDE [Concomitant]
  5. ASPIRIN [Concomitant]
  6. NICORANDIL [Concomitant]
  7. RABEPRAZOLE SODIUM [Concomitant]
  8. SERETIDE [Concomitant]
  9. SERETIDE [Concomitant]
  10. ALBUTEROL [Concomitant]
  11. ISOSORBIDE MONONITRATE [Concomitant]
  12. BISOPROLOL FUMARATE [Concomitant]

REACTIONS (2)
  - LEFT VENTRICULAR FAILURE [None]
  - MYOCARDIAL ISCHAEMIA [None]
